FAERS Safety Report 9475193 (Version 2)
Quarter: 2013Q3

REPORT INFORMATION
  Report Type: Spontaneous
  Country: ES (occurrence: None)
  Receive Date: 20130820
  Receipt Date: 20130828
  Transmission Date: 20140515
  Serious: Yes (Other)
  Sender: FDA-Public Use
  Company Number: AUR-APL-2013-06755

PATIENT
  Age: 17 Year
  Sex: Female
  Weight: 39 kg

DRUGS (2)
  1. OLANZAPINE [Suspect]
     Indication: PRODUCT USED FOR UNKNOWN INDICATION
  2. RISPERIDONE [Suspect]

REACTIONS (4)
  - Oculogyric crisis [None]
  - Dystonia [None]
  - Dyskinesia [None]
  - Feeling abnormal [None]
